FAERS Safety Report 5542711-0 (Version None)
Quarter: 2007Q4

REPORT INFORMATION
  Report Type: 
  Country: None (occurrence: None)
  Receive Date: 20071123
  Receipt Date: 20070327
  Transmission Date: 20080405
  Serious: Yes (Other)
  Sender: FDA-Public Use
  Company Number: US-JNJFOC-20070306733

PATIENT
  Age: 63 Year
  Sex: Female
  Weight: 80.2867 kg

DRUGS (4)
  1. LEVAQUIN [Suspect]
     Indication: PNEUMONIA
     Dosage: 500 MG, 1 IN 1 D, ORAL
     Route: 048
     Dates: start: 20070118, end: 20070128
  2. CHOLESTEROL TABLETS (CHOLESTEROL) TABLET [Concomitant]
  3. BLOOD PRESSURE TABLETS (ANTIHYPERTENSIVES) TABLET [Concomitant]
  4. ZYRTEC [Concomitant]

REACTIONS (1)
  - ARTHRALGIA [None]
